FAERS Safety Report 12187187 (Version 1)
Quarter: 2016Q1

REPORT INFORMATION
  Report Type: Spontaneous
  Country: US (occurrence: None)
  Receive Date: 20160316
  Receipt Date: 20160316
  Transmission Date: 20160526
  Serious: Yes (Disabling)
  Sender: FDA-Public Use
  Company Number: None

PATIENT
  Age: 66 Year
  Sex: Female
  Weight: 52.16 kg

DRUGS (1)
  1. CIPROFLOXACIN 500MG COBALT [Suspect]
     Active Substance: CIPROFLOXACIN
     Indication: URINARY TRACT INFECTION
     Route: 048
     Dates: start: 20141217, end: 20141219

REACTIONS (8)
  - Tendon pain [None]
  - Tendon disorder [None]
  - Erythema [None]
  - Peripheral swelling [None]
  - Joint swelling [None]
  - Myalgia [None]
  - Weight decreased [None]
  - Neuralgia [None]

NARRATIVE: CASE EVENT DATE: 20141217
